FAERS Safety Report 6440130-6 (Version None)
Quarter: 2009Q4

REPORT INFORMATION
  Report Type: 
  Country: None (occurrence: None)
  Receive Date: 20091113
  Receipt Date: 20090119
  Transmission Date: 20100525
  Serious: No
  Sender: FDA-Public Use
  Company Number: A0764177A

PATIENT
  Age: 82 Year
  Sex: Male

DRUGS (19)
  1. COREG [Suspect]
     Dosage: 6.25MG TWICE PER DAY
     Route: 048
     Dates: start: 20071101
  2. COREG CR [Suspect]
     Dosage: 10MG PER DAY
     Route: 048
     Dates: start: 20080501
  3. AMIODARONE HCL [Concomitant]
  4. LISINOPRIL [Concomitant]
  5. ASPIRIN [Concomitant]
  6. COUMADIN [Concomitant]
  7. LIPITOR [Concomitant]
  8. LANOXIN [Concomitant]
  9. FLOMAX [Concomitant]
  10. NEXIUM [Concomitant]
  11. GINGKO [Concomitant]
  12. UNKNOWN MEDICATION [Concomitant]
  13. TEMAZEPAM [Concomitant]
  14. MELATONIN [Concomitant]
  15. MULTI-VITAMIN [Concomitant]
  16. UNKNOWN MEDICATION [Concomitant]
  17. UNKNOWN MEDICATION [Concomitant]
  18. UNKNOWN MEDICATION [Concomitant]
  19. FUROSEMIDE [Concomitant]

REACTIONS (2)
  - DIZZINESS [None]
  - HYPOTENSION [None]
